FAERS Safety Report 17520545 (Version 1)
Quarter: 2020Q1

REPORT INFORMATION
  Report Type: Spontaneous
  Country: DE (occurrence: DE)
  Receive Date: 20200309
  Receipt Date: 20200309
  Transmission Date: 20200409
  Serious: Yes (Other)
  Sender: FDA-Public Use
  Company Number: NVSC2020DE065761

PATIENT
  Age: 60 Year
  Sex: Female

DRUGS (1)
  1. VORICONAZOLE. [Suspect]
     Active Substance: VORICONAZOLE
     Indication: PNEUMONIA
     Dosage: UNK
     Route: 065

REACTIONS (2)
  - Drug ineffective [Recovered/Resolved]
  - Mucormycosis [Unknown]
